FAERS Safety Report 8818962 (Version 2)
Quarter: 2013Q1

REPORT INFORMATION
  Report Type: Spontaneous
  Country: BR (occurrence: BR)
  Receive Date: 20121001
  Receipt Date: 20130326
  Transmission Date: 20140127
  Serious: Yes (Hospitalization)
  Sender: FDA-Public Use
  Company Number: PHHY2008BR39386

PATIENT
  Age: 57 Year
  Sex: Female

DRUGS (9)
  1. DIOVAN HCT [Suspect]
     Dosage: 80 MG VALS AND 12.5 MG HCT
     Dates: start: 200711
  2. DIOVAN [Suspect]
     Indication: HYPERTENSION
     Dosage: 40 MG, BID (MORNING AND NIGHT)
     Route: 048
  3. DIOVAN [Suspect]
     Dosage: 80 MG, UNK
  4. DIOVAN [Suspect]
     Dosage: 160 MG, UNK
     Dates: start: 200703, end: 200710
  5. BETA BLOCKING AGENTS [Concomitant]
     Dosage: 40 MG, QD
  6. BETA BLOCKING AGENTS [Concomitant]
     Dosage: 80 MG, BID
  7. BETA BLOCKING AGENTS [Concomitant]
     Dosage: 160 MG, UNK
  8. BETA BLOCKING AGENTS [Concomitant]
     Dosage: 20 MG, BID (20 MG IN MORNING, 20 MG IN NIGHT)
  9. ATENOLOL [Concomitant]
     Dosage: 25 MG, QD AT NIGHT
     Route: 048

REACTIONS (3)
  - Cerebrovascular accident [Unknown]
  - Hypertension [Not Recovered/Not Resolved]
  - Blood pressure decreased [Unknown]
